FAERS Safety Report 10005659 (Version 1)
Quarter: 2014Q1

REPORT INFORMATION
  Report Type: Spontaneous
  Country: US (occurrence: US)
  Receive Date: 20140313
  Receipt Date: 20140313
  Transmission Date: 20141002
  Serious: No
  Sender: FDA-Public Use
  Company Number: US-BIOGENIDEC-2014BI021189

PATIENT
  Sex: Male

DRUGS (6)
  1. TECFIDERA [Suspect]
     Indication: MULTIPLE SCLEROSIS
     Route: 048
  2. PERCOCET [Concomitant]
  3. OXYBUTYNIN CL ER [Concomitant]
  4. BACLOFEN [Concomitant]
  5. VITAMIN D3 [Concomitant]
  6. CVS VITAMIN C [Concomitant]

REACTIONS (4)
  - Paraesthesia [Recovered/Resolved]
  - Alopecia [Unknown]
  - Trichorrhexis [Unknown]
  - Burning sensation [Recovered/Resolved]
